FAERS Safety Report 7767575-6 (Version None)
Quarter: 2011Q3

REPORT INFORMATION
  Report Type: 
  Country: None (occurrence: None)
  Receive Date: 20110922
  Receipt Date: 20110914
  Transmission Date: 20111222
  Serious: Yes (Hospitalization, Other)
  Sender: FDA-Public Use
  Company Number: US-JNJFOC-20110408920

PATIENT
  Sex: Female

DRUGS (2)
  1. MEDROL [Suspect]
     Indication: CHRONIC SINUSITIS
     Route: 065
  2. LEVAQUIN [Suspect]
     Indication: SINUSITIS
     Route: 048
     Dates: start: 20070801

REACTIONS (3)
  - DRUG INEFFECTIVE [None]
  - TENDONITIS [None]
  - ROTATOR CUFF SYNDROME [None]
